FAERS Safety Report 24985904 (Version 1)
Quarter: 2025Q1

REPORT INFORMATION
  Report Type: Spontaneous
  Country: JO (occurrence: JO)
  Receive Date: 20250219
  Receipt Date: 20250219
  Transmission Date: 20250408
  Serious: Yes (Other)
  Sender: HIKMA
  Company Number: JO-HIKMA PHARMACEUTICALS-JO-H14001-24-11229

PATIENT
  Sex: Female

DRUGS (3)
  1. IFOSFAMIDE [Suspect]
     Active Substance: IFOSFAMIDE
     Indication: Sarcoma uterus
     Route: 041
     Dates: start: 20241223, end: 20241224
  2. DOXORUBICIN [Concomitant]
     Active Substance: DOXORUBICIN
     Indication: Product used for unknown indication
     Route: 065
  3. MESNA [Concomitant]
     Active Substance: MESNA
     Indication: Product used for unknown indication
     Route: 065

REACTIONS (5)
  - Irritability [Unknown]
  - Coma [Recovered/Resolved]
  - Hallucination [Unknown]
  - Depressed level of consciousness [Unknown]
  - Off label use [None]

NARRATIVE: CASE EVENT DATE: 20241223
